FAERS Safety Report 8272004-2 (Version None)
Quarter: 2012Q1

REPORT INFORMATION
  Report Type: 
  Country: None (occurrence: None)
  Receive Date: 20120321
  Receipt Date: 20110414
  Transmission Date: 20120608
  Serious: Yes (Hospitalization, Disabling)
  Sender: FDA-Public Use
  Company Number: 2011SP017056

PATIENT
  Age: 26 Year
  Sex: Male

DRUGS (3)
  1. PEG-INTRON [Suspect]
  2. RIBAVIRIN [Suspect]
     Indication: PRODUCT USED FOR UNKNOWN INDICATION
     Dosage: 4 DF, QD
  3. PEG-INTRON [Suspect]
     Indication: HEPATITIS C
     Dosage: 120 MCG, QW,SC
     Dates: start: 20100628

REACTIONS (1)
  - ANAEMIA [None]
